FAERS Safety Report 17436728 (Version 2)
Quarter: 2020Q1

REPORT INFORMATION
  Report Type: Spontaneous
  Country: CN (occurrence: CN)
  Receive Date: 20200219
  Receipt Date: 20200311
  Transmission Date: 20200409
  Serious: Yes (Other)
  Sender: FDA-Public Use
  Company Number: CN-CELGENEUS-CHN-20200204883

PATIENT
  Age: 54 Year
  Sex: Female

DRUGS (6)
  1. SODIUM CHLORIDE. [Concomitant]
     Active Substance: SODIUM CHLORIDE
     Dosage: 100 MILLILITER
     Route: 041
     Dates: start: 20200109, end: 20200109
  2. ABRAXANE [Suspect]
     Active Substance: PACLITAXEL
     Dosage: .1 GRAM
     Route: 041
     Dates: start: 20200109, end: 20200109
  3. ABRAXANE [Suspect]
     Active Substance: PACLITAXEL
     Dosage: .1 GRAM
     Route: 041
     Dates: start: 20191205, end: 20191205
  4. ABRAXANE [Suspect]
     Active Substance: PACLITAXEL
     Indication: GASTRIC CANCER
     Dosage: .1 GRAM
     Route: 041
     Dates: start: 20191127, end: 20191127
  5. SODIUM CHLORIDE. [Concomitant]
     Active Substance: SODIUM CHLORIDE
     Indication: PROPHYLAXIS
     Dosage: 100 MILLILITER
     Route: 041
     Dates: start: 20191127, end: 20191127
  6. SODIUM CHLORIDE. [Concomitant]
     Active Substance: SODIUM CHLORIDE
     Dosage: 100 MILLILITER
     Route: 041
     Dates: start: 20191205, end: 20191205

REACTIONS (3)
  - Leukopenia [Recovered/Resolved]
  - Leukopenia [Recovering/Resolving]
  - Neutropenia [Recovered/Resolved]

NARRATIVE: CASE EVENT DATE: 20191209
